FAERS Safety Report 26204604 (Version 1)
Quarter: 2025Q4

REPORT INFORMATION
  Report Type: Report from Study
  Country: US (occurrence: US)
  Receive Date: 20251227
  Receipt Date: 20251227
  Transmission Date: 20260117
  Serious: No
  Sender: BIOGEN
  Company Number: US-BIOGEN-2024BI01284849

PATIENT
  Sex: Female

DRUGS (26)
  1. TYSABRI [Suspect]
     Active Substance: NATALIZUMAB
     Indication: Relapsing-remitting multiple sclerosis
     Dates: start: 20140422
  2. TYSABRI [Suspect]
     Active Substance: NATALIZUMAB
     Indication: Multiple sclerosis
     Dates: start: 20140527
  3. TYSABRI [Suspect]
     Active Substance: NATALIZUMAB
     Dates: start: 20140623
  4. TYSABRI [Suspect]
     Active Substance: NATALIZUMAB
     Dates: start: 20240927
  5. BETASERON [Concomitant]
     Active Substance: INTERFERON BETA-1B
  6. CLARITIN [Concomitant]
     Active Substance: LORATADINE
  7. DANTROLENE [Concomitant]
     Active Substance: DANTROLENE
  8. VENLAFAXINE [Concomitant]
     Active Substance: VENLAFAXINE HYDROCHLORIDE
  9. UBRELVY [Concomitant]
     Active Substance: UBROGEPANT
  10. TOPIRAMATE [Concomitant]
     Active Substance: TOPIRAMATE
  11. PEPCID [Concomitant]
     Active Substance: FAMOTIDINE
  12. MELOXICAM [Concomitant]
     Active Substance: MELOXICAM
  13. IMITREX [Concomitant]
     Active Substance: SUMATRIPTAN SUCCINATE
  14. LACOSAMIDE [Concomitant]
     Active Substance: LACOSAMIDE
  15. NEURONTIN [Concomitant]
     Active Substance: GABAPENTIN
  16. OXYCONTIN [Concomitant]
     Active Substance: OXYCODONE HYDROCHLORIDE
  17. PREDNISONE [Concomitant]
     Active Substance: PREDNISONE
  18. PROZAC [Concomitant]
     Active Substance: FLUOXETINE HYDROCHLORIDE
  19. Sprinolactone [Concomitant]
  20. ZOMIG [Concomitant]
     Active Substance: ZOLMITRIPTAN
  21. ENTRESTO [Concomitant]
     Active Substance: SACUBITRIL\VALSARTAN
  22. FLEXERIL [Concomitant]
     Active Substance: CYCLOBENZAPRINE HYDROCHLORIDE
  23. MARINOL [Concomitant]
     Active Substance: DRONABINOL
  24. ZANAFLEX [Concomitant]
     Active Substance: TIZANIDINE HYDROCHLORIDE
  25. XANAX [Concomitant]
     Active Substance: ALPRAZOLAM
  26. VYVANSE [Concomitant]
     Active Substance: LISDEXAMFETAMINE DIMESYLATE

REACTIONS (4)
  - Drug hypersensitivity [Unknown]
  - Feeling cold [Unknown]
  - Feeling hot [Unknown]
  - Fatigue [Unknown]

NARRATIVE: CASE EVENT DATE: 20240927
